FAERS Safety Report 8191417-0 (Version None)
Quarter: 2012Q1

REPORT INFORMATION
  Report Type: 
  Country: None (occurrence: None)
  Receive Date: 20120307
  Receipt Date: 20111219
  Transmission Date: 20120608
  Serious: No
  Sender: FDA-Public Use
  Company Number: US-ASTRAZENECA-2011SE77315

PATIENT
  Age: 55 Year
  Sex: Female

DRUGS (3)
  1. ZOMIG [Suspect]
     Route: 048
  2. CRESTOR [Concomitant]
     Route: 048
  3. NEXIUM [Concomitant]
     Route: 048

REACTIONS (3)
  - MIGRAINE [None]
  - STRESS [None]
  - HEADACHE [None]
